FAERS Safety Report 9154565 (Version 1)
Quarter: 2013Q1

REPORT INFORMATION
  Report Type: Spontaneous
  Country: US (occurrence: None)
  Receive Date: 20130308
  Receipt Date: 20130308
  Transmission Date: 20140127
  Serious: Yes (Death)
  Sender: FDA-Public Use
  Company Number: None

PATIENT
  Age: 40 Year
  Sex: Male
  Weight: 132 kg

DRUGS (1)
  1. KEFZOL [Suspect]
     Indication: PROPHYLAXIS
     Route: 042
     Dates: start: 20130205, end: 20130205

REACTIONS (3)
  - Anaphylactic reaction [None]
  - Cardio-respiratory arrest [None]
  - Brain injury [None]
